FAERS Safety Report 8917029 (Version 2)
Quarter: 2013Q2

REPORT INFORMATION
  Report Type: Spontaneous
  Country: US (occurrence: US)
  Receive Date: 20121120
  Receipt Date: 20130519
  Transmission Date: 20140414
  Serious: No
  Sender: FDA-Public Use
  Company Number: US-ALLERGAN-1214082US

PATIENT
  Age: 54 Year
  Sex: Female

DRUGS (2)
  1. LASTACAFT [Suspect]
     Indication: CONJUNCTIVITIS ALLERGIC
     Dosage: 1 GTT OU, QD
     Route: 047
     Dates: start: 201112, end: 201112
  2. ZALEPLON [Concomitant]
     Indication: INSOMNIA
     Dosage: UNK UNK, QHS
     Route: 048

REACTIONS (2)
  - Lacrimation increased [Recovered/Resolved]
  - Conjunctival hyperaemia [Recovered/Resolved]
